FAERS Safety Report 10086671 (Version 2)
Quarter: 2014Q2

REPORT INFORMATION
  Report Type: Report from Study
  Country: US (occurrence: US)
  Receive Date: 20140418
  Receipt Date: 20140516
  Transmission Date: 20141212
  Serious: Yes (Hospitalization)
  Sender: FDA-Public Use
  Company Number: US-ABBVIE-14P-163-1225655-00

PATIENT
  Age: 77 Year
  Sex: Male
  Weight: 70.9 kg

DRUGS (2)
  1. LUPRON DEPOT [Suspect]
     Indication: PROSTATE CANCER
     Route: 030
     Dates: start: 20131112, end: 20140205
  2. TAK-700 (TAK-700) TABLET [Concomitant]
     Indication: PROSTATE CANCER
     Dates: start: 20131112, end: 20140401

REACTIONS (3)
  - Pleural effusion [Recovering/Resolving]
  - Dyspnoea [Recovered/Resolved]
  - Hypertension [Recovered/Resolved]
